FAERS Safety Report 12877304 (Version 2)
Quarter: 2016Q4

REPORT INFORMATION
  Report Type: Report from Study
  Country: US (occurrence: US)
  Receive Date: 20161024
  Receipt Date: 20161108
  Transmission Date: 20170207
  Serious: Yes (Hospitalization, Other)
  Sender: FDA-Public Use
  Company Number: PHEH2016US027023

PATIENT
  Age: 70 Year
  Sex: Male
  Weight: 76.65 kg

DRUGS (1)
  1. GLEEVEC [Suspect]
     Active Substance: IMATINIB MESYLATE
     Indication: GASTROINTESTINAL STROMAL TUMOUR
     Dosage: 400 MG, QD
     Route: 048
     Dates: end: 20161015

REACTIONS (6)
  - Dyspnoea [Unknown]
  - Abdominal distension [Unknown]
  - Ascites [Not Recovered/Not Resolved]
  - Abdominal pain [Recovering/Resolving]
  - Gait disturbance [Unknown]
  - Gastric neoplasm [Unknown]

NARRATIVE: CASE EVENT DATE: 20161014
